FAERS Safety Report 25059871 (Version 1)
Quarter: 2025Q1

REPORT INFORMATION
  Report Type: Spontaneous
  Country: US (occurrence: US)
  Receive Date: 20250310
  Receipt Date: 20250310
  Transmission Date: 20250409
  Serious: Yes (Other)
  Sender: PARATEK PHARMACEUTICALS
  Company Number: US-PARATEK PHARMACEUTICALS, INC.-2025PTK00290

PATIENT
  Age: 56 Year
  Sex: Male

DRUGS (1)
  1. OMADACYCLINE [Suspect]
     Active Substance: OMADACYCLINE

REACTIONS (4)
  - Pulmonary sarcoidosis [Unknown]
  - Mycobacterium abscessus infection [Unknown]
  - Hepatotoxicity [Unknown]
  - Hypertension [Unknown]
